FAERS Safety Report 12328651 (Version 1)
Quarter: 2016Q2

REPORT INFORMATION
  Report Type: Spontaneous
  Country: US (occurrence: US)
  Receive Date: 20160503
  Receipt Date: 20160503
  Transmission Date: 20160815
  Serious: No
  Sender: FDA-Public Use
  Company Number: US-BEH-2015049908

PATIENT
  Sex: Female
  Weight: 93 kg

DRUGS (18)
  1. NUVARING [Concomitant]
     Active Substance: ETHINYL ESTRADIOL\ETONOGESTREL
  2. FLUTICASONE [Concomitant]
     Active Substance: FLUTICASONE\FLUTICASONE PROPIONATE
  3. HIZENTRA [Suspect]
     Active Substance: HUMAN IMMUNOGLOBULIN G
     Indication: IMMUNODEFICIENCY COMMON VARIABLE
     Dosage: 10 GM 50 ML VIAL
     Route: 058
  4. RANITIDINE. [Concomitant]
     Active Substance: RANITIDINE
  5. DIPHENHYDRAMINE. [Concomitant]
     Active Substance: DIPHENHYDRAMINE
  6. ECHINACEA + GOLDENSEAL [Concomitant]
  7. AMBIEN [Concomitant]
     Active Substance: ZOLPIDEM TARTRATE
  8. LIDOCAINE. [Concomitant]
     Active Substance: LIDOCAINE
  9. LISINOPRIL. [Concomitant]
     Active Substance: LISINOPRIL
  10. SUMATRIPTAN. [Concomitant]
     Active Substance: SUMATRIPTAN
  11. LYRICA [Concomitant]
     Active Substance: PREGABALIN
  12. AZITHROMYCIN ANHYDROUS. [Concomitant]
     Active Substance: AZITHROMYCIN ANHYDROUS
  13. FLEXERIL [Concomitant]
     Active Substance: CYCLOBENZAPRINE HYDROCHLORIDE
  14. ADDERALL [Concomitant]
     Active Substance: AMPHETAMINE ASPARTATE\AMPHETAMINE SULFATE\DEXTROAMPHETAMINE SACCHARATE\DEXTROAMPHETAMINE SULFATE
  15. ACETAMINOPHEN. [Concomitant]
     Active Substance: ACETAMINOPHEN
  16. EPIPEN [Concomitant]
     Active Substance: EPINEPHRINE
  17. SINGULAIR [Concomitant]
     Active Substance: MONTELUKAST SODIUM
  18. ECHINACEA + GOLDEN SEAL [Concomitant]

REACTIONS (3)
  - Pyrexia [Unknown]
  - Pain [Unknown]
  - Fatigue [Unknown]
